FAERS Safety Report 7586316-9 (Version None)
Quarter: 2011Q2

REPORT INFORMATION
  Report Type: 
  Country: None (occurrence: None)
  Receive Date: 20110630
  Receipt Date: 20110630
  Transmission Date: 20111010
  Serious: Yes (Life-Threatening, Hospitalization, Disabling)
  Sender: FDA-Public Use
  Company Number: None

PATIENT
  Age: 31 Year
  Sex: Female
  Weight: 78 kg

DRUGS (2)
  1. LAMOTRIGINE (LAMICTAL) [Suspect]
     Indication: CONVULSION
     Dosage: 100 MG TWICE DAILHY ORAL
     Route: 048
  2. VALPROIC ACID [Concomitant]

REACTIONS (2)
  - EYE IRRITATION [None]
  - TOXIC EPIDERMAL NECROLYSIS [None]
